FAERS Safety Report 23395715 (Version 1)
Quarter: 2024Q1

REPORT INFORMATION
  Report Type: Other
  Country: PT (occurrence: None)
  Receive Date: 20240112
  Receipt Date: 20240112
  Transmission Date: 20240409
  Serious: Yes (Death)
  Sender: FDA-Public Use
  Company Number: PT-ROCHE-3489750

PATIENT
  Age: 88 Year
  Sex: Male

DRUGS (16)
  1. PERJETA [Suspect]
     Active Substance: PERTUZUMAB
     Indication: Breast cancer
     Dosage: FREQUENCY: Q3W - EVERY 3 WEEKS MOST RECENT DOSE PRIOR TO THE EVENT: 20170504
     Route: 042
     Dates: start: 20170406, end: 20170504
  2. HERCEPTIN [Suspect]
     Active Substance: TRASTUZUMAB
     Indication: Breast cancer
     Dosage: FREQUENCY: Q3W - EVERY 3 WEEKS MOST RECENT DOSE PRIOR TO THE EVENT: 20170525
     Route: 041
     Dates: start: 20170406, end: 20170525
  3. TAXOL [Suspect]
     Active Substance: PACLITAXEL
     Indication: Breast cancer
     Dosage: WEEKLY
     Route: 042
     Dates: start: 20170316, end: 201707
  4. ASPIRIN [Concomitant]
     Active Substance: ASPIRIN
     Dosage: ONGOING = NOT CHECKED
     Dates: end: 20180820
  5. ASPIRIN [Concomitant]
     Active Substance: ASPIRIN
     Dosage: ONGOING = NOT CHECKED
     Dates: end: 20180820
  6. AMITRIPTYLINE HYDROCHLORIDE [Concomitant]
     Active Substance: AMITRIPTYLINE HYDROCHLORIDE
     Dosage: ONGOING = CHECKED
  7. BISOPROLOL [Concomitant]
     Active Substance: BISOPROLOL\BISOPROLOL FUMARATE
     Dosage: ONGOING = CHECKED
  8. DOMPERIDONE [Concomitant]
     Active Substance: DOMPERIDONE
     Dosage: ONGOING = CHECKED
  9. LOPERAMIDE HYDROCHLORIDE [Concomitant]
     Active Substance: LOPERAMIDE HYDROCHLORIDE
     Dosage: ONGOING = CHECKED
  10. METAMIZOLE [Concomitant]
     Active Substance: METAMIZOLE
     Dosage: ONGOING = CHECKED
  11. PREGABALIN [Concomitant]
     Active Substance: PREGABALIN
     Dosage: ONGOING = CHECKED
  12. SERTRALINE [Concomitant]
     Active Substance: SERTRALINE HYDROCHLORIDE
     Dosage: ONGOING = CHECKED
  13. LOPERAMIDE [Concomitant]
     Active Substance: LOPERAMIDE
     Dosage: ONGOING = NOT CHECKED
     Dates: start: 20170420
  14. HYALURONATE SODIUM [Concomitant]
     Active Substance: HYALURONATE SODIUM
     Dosage: ONGOING = CHECKED
     Dates: start: 20170615
  15. ACETAMINOPHEN [Concomitant]
     Active Substance: ACETAMINOPHEN
     Dosage: ONGOING = CHECKED
     Dates: start: 20170805
  16. LATANOPROST [Concomitant]
     Active Substance: LATANOPROST
     Dosage: ONGOING = CHECKED
     Dates: start: 20180115

REACTIONS (1)
  - Death [Fatal]

NARRATIVE: CASE EVENT DATE: 20180820
